FAERS Safety Report 7044687-6 (Version None)
Quarter: 2010Q4

REPORT INFORMATION
  Report Type: 
  Country: None (occurrence: None)
  Receive Date: 20101013
  Receipt Date: 20101013
  Transmission Date: 20110411
  Serious: No
  Sender: FDA-Public Use
  Company Number: None

PATIENT
  Age: 10 Year
  Sex: Male
  Weight: 28.5766 kg

DRUGS (1)
  1. ZYPREXA [Suspect]
     Indication: DRUG DISPENSING ERROR
     Dosage: 1 MG TABLET ONE TIME USE PO
     Route: 048
     Dates: start: 20100923, end: 20100923

REACTIONS (12)
  - ABNORMAL BEHAVIOUR [None]
  - CONFUSIONAL STATE [None]
  - DISORIENTATION [None]
  - DRUG DISPENSING ERROR [None]
  - DYSARTHRIA [None]
  - HYPERSOMNIA [None]
  - LOSS OF CONSCIOUSNESS [None]
  - MALAISE [None]
  - MEDICATION ERROR [None]
  - MOTOR DYSFUNCTION [None]
  - MUSCLE SPASMS [None]
  - WRONG DRUG ADMINISTERED [None]
